FAERS Safety Report 18581894 (Version 2)
Quarter: 2020Q4

REPORT INFORMATION
  Report Type: Report from Study
  Country: None (occurrence: US)
  Receive Date: 20201205
  Receipt Date: 20201215
  Transmission Date: 20210114
  Serious: Yes (Hospitalization)
  Sender: FDA-Public Use
  Company Number: US-ABBVIE-20K-163-3644142-00

PATIENT
  Age: 25 Year
  Sex: Female
  Weight: 81.72 kg

DRUGS (3)
  1. SKYRIZI [Suspect]
     Active Substance: RISANKIZUMAB-RZAA
     Route: 058
     Dates: start: 2019
  2. SKYRIZI [Suspect]
     Active Substance: RISANKIZUMAB-RZAA
     Dosage: STARTED IN APR OR MAY 2019
     Route: 058
     Dates: start: 2019, end: 2019
  3. SKYRIZI [Suspect]
     Active Substance: RISANKIZUMAB-RZAA
     Indication: PSORIASIS
     Dosage: STARTED IN FEB OR MAR 2019
     Route: 058
     Dates: start: 2019, end: 2019

REACTIONS (6)
  - Sepsis [Recovered/Resolved]
  - Rash macular [Recovering/Resolving]
  - Pyrexia [Recovered/Resolved]
  - Groin pain [Recovered/Resolved]
  - Heart rate increased [Recovered/Resolved]
  - Staphylococcal infection [Unknown]

NARRATIVE: CASE EVENT DATE: 2020
